FAERS Safety Report 12864660 (Version 1)
Quarter: 2016Q4

REPORT INFORMATION
  Report Type: Spontaneous
  Country: US (occurrence: US)
  Receive Date: 20161018
  Receipt Date: 20161018
  Transmission Date: 20170207
  Serious: No
  Sender: FDA-Public Use
  Company Number: None

PATIENT
  Age: 48 Year
  Sex: Female

DRUGS (1)
  1. IBRANCE [Suspect]
     Active Substance: PALBOCICLIB
     Indication: BREAST CANCER FEMALE

REACTIONS (5)
  - Increased tendency to bruise [None]
  - Anaemia [None]
  - Thrombocytopenia [None]
  - Haemorrhage [None]
  - Alopecia [None]

NARRATIVE: CASE EVENT DATE: 20160424
